FAERS Safety Report 12683841 (Version 1)
Quarter: 2016Q3

REPORT INFORMATION
  Report Type: Spontaneous
  Country: US (occurrence: US)
  Receive Date: 20160825
  Receipt Date: 20160825
  Transmission Date: 20161109
  Serious: Yes (Hospitalization)
  Sender: FDA-Public Use
  Company Number: US-ASTRAZENECA-2016SE89489

PATIENT
  Age: 549 Month
  Sex: Male
  Weight: 74.4 kg

DRUGS (2)
  1. TAGRISSO [Suspect]
     Active Substance: OSIMERTINIB
     Indication: LUNG ADENOCARCINOMA STAGE IV
     Route: 048
     Dates: start: 20160505
  2. VITAMIN [Concomitant]
     Active Substance: VITAMINS
     Route: 048

REACTIONS (5)
  - Foot fracture [Recovering/Resolving]
  - Femur fracture [Recovering/Resolving]
  - Road traffic accident [Unknown]
  - Faeces hard [Not Recovered/Not Resolved]
  - Tibia fracture [Recovering/Resolving]

NARRATIVE: CASE EVENT DATE: 201605
